FAERS Safety Report 11375728 (Version 1)
Quarter: 2015Q3

REPORT INFORMATION
  Report Type: Spontaneous
  Country: HU (occurrence: HU)
  Receive Date: 20150813
  Receipt Date: 20150813
  Transmission Date: 20151125
  Serious: Yes (Death, Hospitalization, Other)
  Sender: FDA-Public Use
  Company Number: HU-ACTELION-A-CH2015-122150

PATIENT
  Age: 70 Year
  Sex: Male

DRUGS (9)
  1. CLOPIDOGREL [Concomitant]
     Active Substance: CLOPIDOGREL BISULFATE
     Indication: ACUTE CORONARY SYNDROME
     Dosage: 75 MG, UNK
     Route: 048
     Dates: start: 20150526
  2. PANTOPRAZOLE SODIUM. [Concomitant]
     Active Substance: PANTOPRAZOLE SODIUM
     Dosage: 40 MG, BID
     Route: 048
     Dates: start: 20091001
  3. BISPROLOL COMP [Concomitant]
     Indication: VENTRICULAR FAILURE
     Dosage: 5 MG, BID
     Route: 048
     Dates: start: 20091001
  4. ACETYLSALICYLIC ACID [Concomitant]
     Active Substance: ASPIRIN
     Indication: ACUTE CORONARY SYNDROME
     Dosage: 100 MG, UNK
     Route: 048
     Dates: start: 20150526
  5. ALLOPURINOL. [Concomitant]
     Active Substance: ALLOPURINOL
     Dosage: 300 MG, UNK
     Route: 048
  6. TRACLEER [Suspect]
     Active Substance: BOSENTAN
     Dosage: 62.5 MG, BID
     Route: 048
     Dates: start: 20091001, end: 20091105
  7. PRETANIX [Concomitant]
     Indication: CARDIAC FAILURE
     Dosage: UNK, BID
     Route: 048
     Dates: start: 20091001
  8. ACENOCOUMAROL [Concomitant]
     Active Substance: ACENOCOUMAROL
     Dosage: 1 MG, UNK
     Route: 048
     Dates: start: 20091001
  9. TRACLEER [Suspect]
     Active Substance: BOSENTAN
     Indication: PULMONARY ARTERIAL HYPERTENSION
     Dosage: 125 MG, BID
     Route: 048
     Dates: start: 20091105, end: 20150729

REACTIONS (32)
  - Candida infection [Fatal]
  - Klebsiella infection [Fatal]
  - Haemoglobin decreased [Unknown]
  - Acidosis [Unknown]
  - Hypovolaemic shock [Unknown]
  - Cardiac failure [Unknown]
  - Post procedural haemorrhage [Unknown]
  - Pneumonia escherichia [Fatal]
  - Syncope [Unknown]
  - Pulse absent [Unknown]
  - Disease progression [Unknown]
  - Blood bilirubin increased [Unknown]
  - Blood creatinine increased [Fatal]
  - Staphylococcal infection [Fatal]
  - International normalised ratio increased [Unknown]
  - Hypernatraemia [Unknown]
  - Dyspnoea [Unknown]
  - Accident [Unknown]
  - Azotaemia [Fatal]
  - Tracheostomy [Unknown]
  - Pulmonary arterial hypertension [Unknown]
  - Apnoea [Unknown]
  - Septic shock [Fatal]
  - Transfusion [Unknown]
  - Ascites [Unknown]
  - Anaemia [Unknown]
  - Hypoxia [Unknown]
  - Respiratory failure [Unknown]
  - Circulatory collapse [Unknown]
  - Concomitant disease progression [Unknown]
  - Transfusion [Unknown]
  - Head injury [Unknown]

NARRATIVE: CASE EVENT DATE: 20150710
